FAERS Safety Report 12316751 (Version 1)
Quarter: 2016Q2

REPORT INFORMATION
  Report Type: Spontaneous
  Country: US (occurrence: US)
  Receive Date: 20160429
  Receipt Date: 20160429
  Transmission Date: 20160815
  Serious: Yes (Other)
  Sender: FDA-Public Use
  Company Number: US-BEH-2016061812

PATIENT
  Age: 69 Year
  Sex: Female
  Weight: 83 kg

DRUGS (50)
  1. DIPHENHYDRAMINE. [Concomitant]
     Active Substance: DIPHENHYDRAMINE
  2. HYDROXYZINE [Concomitant]
     Active Substance: HYDROXYZINE\HYDROXYZINE HYDROCHLORIDE
  3. ANUSOL NOS [Concomitant]
     Active Substance: BALSAM PERU\BENZYL BENZOATE\BISMUTH HYDROXIDE\BISMUTH SUBGALLATE\HYDROCORTISONE ACETATE\ZINC OXIDE
  4. ZOLPIDEM [Concomitant]
     Active Substance: ZOLPIDEM\ZOLPIDEM TARTRATE
  5. BENEFIBER [Concomitant]
     Active Substance: STARCH, WHEAT
  6. BUDESONIDE. [Concomitant]
     Active Substance: BUDESONIDE
  7. METOPROLOL. [Concomitant]
     Active Substance: METOPROLOL
  8. CULTURELLE [Concomitant]
     Active Substance: LACTOBACILLUS RHAMNOSUS
  9. MIRALAX [Concomitant]
     Active Substance: POLYETHYLENE GLYCOL 3350
  10. EPIPEN [Concomitant]
     Active Substance: EPINEPHRINE
  11. LORTAB [Concomitant]
     Active Substance: ACETAMINOPHEN\HYDROCODONE BITARTRATE
  12. XANAX [Concomitant]
     Active Substance: ALPRAZOLAM
  13. POTASSIUM [Concomitant]
     Active Substance: POTASSIUM
  14. CLONIDINE. [Concomitant]
     Active Substance: CLONIDINE
  15. NASACORT [Concomitant]
     Active Substance: TRIAMCINOLONE ACETONIDE
  16. ACETAMINOPHEN. [Concomitant]
     Active Substance: ACETAMINOPHEN
  17. HYDRALAZINE [Concomitant]
     Active Substance: HYDRALAZINE HYDROCHLORIDE
  18. LASIX [Concomitant]
     Active Substance: FUROSEMIDE
  19. ACYCLOVIR. [Concomitant]
     Active Substance: ACYCLOVIR
  20. TRANDOLAPRIL. [Concomitant]
     Active Substance: TRANDOLAPRIL
  21. DEXILANT [Concomitant]
     Active Substance: DEXLANSOPRAZOLE
  22. HIZENTRA [Suspect]
     Active Substance: HUMAN IMMUNOGLOBULIN G
     Indication: HYPOGAMMAGLOBULINAEMIA
  23. LIDOCAINE. [Concomitant]
     Active Substance: LIDOCAINE
  24. TUSSIONEX PENNKINETIC [Concomitant]
     Active Substance: CHLORPHENIRAMINE\HYDROCODONE
  25. TRAVATAN [Concomitant]
     Active Substance: TRAVOPROST
  26. LYRICA [Concomitant]
     Active Substance: PREGABALIN
  27. HIZENTRA [Suspect]
     Active Substance: HUMAN IMMUNOGLOBULIN G
     Route: 058
     Dates: start: 20121015
  28. DICYCLOMINE [Concomitant]
     Active Substance: DICYCLOMINE HYDROCHLORIDE
  29. VERAPAMIL [Concomitant]
     Active Substance: VERAPAMIL HYDROCHLORIDE
  30. MICARDIS [Concomitant]
     Active Substance: TELMISARTAN
  31. LIPITOR [Concomitant]
     Active Substance: ATORVASTATIN CALCIUM
  32. CORTICOSTEROIDS [Concomitant]
     Active Substance: CORTICOSTEROID NOS
  33. OXYCONTIN [Concomitant]
     Active Substance: OXYCODONE HYDROCHLORIDE
  34. NEURONTIN [Concomitant]
     Active Substance: GABAPENTIN
  35. NYSTATIN. [Concomitant]
     Active Substance: NYSTATIN
  36. EYE DROP [Concomitant]
     Active Substance: UNSPECIFIED INGREDIENT
  37. HYDROCORTISONE. [Concomitant]
     Active Substance: HYDROCORTISONE
  38. THEOPHYLLINE [Concomitant]
     Active Substance: THEOPHYLLINE ANHYDROUS
  39. PRILOCAINE [Concomitant]
     Active Substance: PRILOCAINE
  40. HYOSCYAMINE. [Concomitant]
     Active Substance: HYOSCYAMINE
  41. COLACE [Concomitant]
     Active Substance: DOCUSATE SODIUM
  42. ALLEGRA [Concomitant]
     Active Substance: FEXOFENADINE HYDROCHLORIDE
  43. ADVAIR HFA [Concomitant]
     Active Substance: FLUTICASONE PROPIONATE\SALMETEROL XINAFOATE
  44. OMEPRAZOLE. [Concomitant]
     Active Substance: OMEPRAZOLE
  45. COLCRYS [Concomitant]
     Active Substance: COLCHICINE
  46. SINGULAIR [Concomitant]
     Active Substance: MONTELUKAST SODIUM
  47. HIZENTRA [Suspect]
     Active Substance: HUMAN IMMUNOGLOBULIN G
     Indication: IMMUNODEFICIENCY COMMON VARIABLE
  48. TEKTURNA [Concomitant]
     Active Substance: ALISKIREN HEMIFUMARATE
  49. IRON [Concomitant]
     Active Substance: IRON
  50. PATANOL [Concomitant]
     Active Substance: OLOPATADINE HYDROCHLORIDE

REACTIONS (1)
  - Gastric infection [Unknown]

NARRATIVE: CASE EVENT DATE: 20160329
